FAERS Safety Report 23932783 (Version 1)
Quarter: 2024Q2

REPORT INFORMATION
  Report Type: Spontaneous
  Country: US (occurrence: None)
  Receive Date: 20240531
  Receipt Date: 20240531
  Transmission Date: 20240716
  Serious: Yes (Hospitalization)
  Sender: FDA-Public Use
  Company Number: None

PATIENT
  Age: 53 Year
  Sex: Female

DRUGS (1)
  1. SKYRIZI [Suspect]
     Active Substance: RISANKIZUMAB-RZAA
     Dosage: OTHER FREQUENCY : WEEK 0, WEEK 4, Q1;?

REACTIONS (4)
  - Abdominal discomfort [None]
  - Rash [None]
  - Diarrhoea [None]
  - Ear infection [None]
